FAERS Safety Report 4809345-4 (Version None)
Quarter: 2005Q4

REPORT INFORMATION
  Report Type: 
  Country: None (occurrence: None)
  Receive Date: 20051021
  Receipt Date: 20020131
  Transmission Date: 20060501
  Serious: No
  Sender: FDA-Public Use
  Company Number: USA020110753

PATIENT
  Age: 24 Year
  Sex: Female
  Weight: 50 kg

DRUGS (2)
  1. ZYPREXA [Suspect]
     Indication: DETOXIFICATION
     Dosage: 2.5 MG/DAY
     Dates: start: 20020102, end: 20020116
  2. DIAZEPAM [Concomitant]

REACTIONS (3)
  - DYSMENORRHOEA [None]
  - HYPOMENORRHOEA [None]
  - WEIGHT INCREASED [None]
